FAERS Safety Report 25517913 (Version 2)
Quarter: 2025Q3

REPORT INFORMATION
  Report Type: Report from Study
  Country: US (occurrence: US)
  Receive Date: 20250704
  Receipt Date: 20250809
  Transmission Date: 20251020
  Serious: Yes (Hospitalization)
  Sender: ALEXION PHARMACEUTICALS
  Company Number: US-AstraZeneca-CH-00898610A

PATIENT
  Sex: Male
  Weight: 67.898 kg

DRUGS (20)
  1. ACALABRUTINIB [Suspect]
     Active Substance: ACALABRUTINIB
     Indication: Chronic lymphocytic leukaemia
     Dosage: 100 MILLIGRAM, QD
     Dates: start: 20250213
  2. HYDROCODONE [Concomitant]
     Active Substance: HYDROCODONE
     Route: 065
  3. ALDARA [Concomitant]
     Active Substance: IMIQUIMOD
     Route: 065
  4. COLACE [Concomitant]
     Active Substance: DOCUSATE SODIUM
     Route: 065
  5. CYMBALTA [Concomitant]
     Active Substance: DULOXETINE HYDROCHLORIDE
     Route: 065
  6. DEXLANSOPRAZOLE [Concomitant]
     Active Substance: DEXLANSOPRAZOLE
     Route: 065
  7. DIGOXIN [Concomitant]
     Active Substance: DIGOXIN
     Route: 065
  8. ENTRESTO [Concomitant]
     Active Substance: SACUBITRIL\VALSARTAN
     Route: 065
  9. FIBERCON [Concomitant]
     Active Substance: CALCIUM POLYCARBOPHIL
     Route: 065
  10. FINASTERIDE [Concomitant]
     Active Substance: FINASTERIDE
     Route: 065
  11. FLOMAX [Concomitant]
     Active Substance: TAMSULOSIN HYDROCHLORIDE
     Route: 065
  12. GABAPENTIN [Concomitant]
     Active Substance: GABAPENTIN
     Route: 065
  13. LIPITOR [Concomitant]
     Active Substance: ATORVASTATIN CALCIUM
     Route: 065
  14. MAGNESIUM CITRATE [Concomitant]
     Active Substance: MAGNESIUM CITRATE
     Route: 065
  15. METFORMIN HYDROCHLORIDE [Concomitant]
     Active Substance: METFORMIN HYDROCHLORIDE
     Route: 065
  16. METOPROLOL [Concomitant]
     Active Substance: METOPROLOL
     Route: 065
  17. WARFARIN [Concomitant]
     Active Substance: WARFARIN
     Route: 065
  18. VITAMIN D3 [Concomitant]
     Active Substance: CHOLECALCIFEROL
     Route: 065
  19. ACETAMINOPHEN [Concomitant]
     Active Substance: ACETAMINOPHEN
     Route: 065
  20. VITAMIN B12 [Concomitant]
     Active Substance: CYANOCOBALAMIN
     Route: 065

REACTIONS (1)
  - Cardiac disorder [Unknown]
